FAERS Safety Report 6977231-X (Version None)
Quarter: 2010Q3

REPORT INFORMATION
  Report Type: 
  Country: None (occurrence: None)
  Receive Date: 20100910
  Receipt Date: 20100803
  Transmission Date: 20110219
  Serious: No
  Sender: FDA-Public Use
  Company Number: US-PFIZER INC-2010098408

PATIENT
  Sex: Male
  Weight: 78.005 kg

DRUGS (2)
  1. CAVERJECT IMPULSE [Suspect]
     Indication: ERECTILE DYSFUNCTION
     Dosage: 20 UG, UNK
     Route: 011
  2. VIAGRA [Suspect]
     Indication: ERECTILE DYSFUNCTION
     Dosage: UNK

REACTIONS (5)
  - DRUG INEFFECTIVE [None]
  - ERECTILE DYSFUNCTION [None]
  - INJECTION SITE PAIN [None]
  - PENILE PAIN [None]
  - SWELLING [None]
